FAERS Safety Report 23719084 (Version 1)
Quarter: 2024Q2

REPORT INFORMATION
  Report Type: Spontaneous
  Country: NO (occurrence: NO)
  Receive Date: 20240408
  Receipt Date: 20240408
  Transmission Date: 20240716
  Serious: Yes (Death, Hospitalization)
  Sender: FDA-Public Use
  Company Number: None

PATIENT
  Age: 84 Year
  Sex: Male

DRUGS (2)
  1. NAPROXEN [Suspect]
     Active Substance: NAPROXEN
     Indication: Arthralgia
     Dosage: 500 MILLIGRAM, BID (500 MG X 2 WAS GIVEN)
     Route: 065
     Dates: start: 20240218, end: 20240218
  2. IBUPROFEN [Suspect]
     Active Substance: IBUPROFEN
     Indication: Pain
     Dosage: THE DOSAGE AND DURATION IS REPORTED UNKNOWN.
     Route: 065

REACTIONS (7)
  - Cardiac arrest [Fatal]
  - Acute myocardial infarction [Fatal]
  - Procedural complication [Fatal]
  - Abdominal pain [Fatal]
  - Gastric ulcer haemorrhage [Fatal]
  - Duodenal ulcer haemorrhage [Fatal]
  - Melaena [Fatal]

NARRATIVE: CASE EVENT DATE: 20240223
